FAERS Safety Report 25651348 (Version 6)
Quarter: 2025Q4

REPORT INFORMATION
  Report Type: Spontaneous
  Country: US (occurrence: US)
  Receive Date: 20250806
  Receipt Date: 20251216
  Transmission Date: 20260117
  Serious: Yes (Death, Hospitalization, Other)
  Sender: GILEAD
  Company Number: US-GILEAD-2025-0723502

PATIENT
  Age: 26 Year
  Sex: Male

DRUGS (1)
  1. YESCARTA [Suspect]
     Active Substance: AXICABTAGENE CILOLEUCEL
     Indication: Primary mediastinal large B-cell lymphoma
     Dosage: UNK
     Route: 065
     Dates: start: 202507, end: 202507

REACTIONS (6)
  - Brain herniation [Fatal]
  - Immune effector cell-associated neurotoxicity syndrome [Fatal]
  - Spinal cord oedema [Unknown]
  - Brain oedema [Unknown]
  - Cytokine release syndrome [Recovered/Resolved]
  - Status epilepticus [Unknown]
